FAERS Safety Report 5040652-9 (Version None)
Quarter: 2006Q2

REPORT INFORMATION
  Report Type: 
  Country: None (occurrence: None)
  Receive Date: 20060630
  Receipt Date: 20060630
  Transmission Date: 20061013
  Serious: Yes (Hospitalization)
  Sender: FDA-Public Use
  Company Number: None

PATIENT
  Age: 51 Year
  Sex: Male
  Weight: 89.4 kg

DRUGS (4)
  1. SPIRONOLACTONE [Suspect]
  2. ISOSORBIDE DINITRATIN [Concomitant]
  3. FUROSEMIDE [Concomitant]
  4. PAROXETINE HCL [Concomitant]

REACTIONS (1)
  - GYNAECOMASTIA [None]
